FAERS Safety Report 6398402-X (Version None)
Quarter: 2009Q4

REPORT INFORMATION
  Report Type: 
  Country: None (occurrence: None)
  Receive Date: 20091013
  Receipt Date: 20091005
  Transmission Date: 20100525
  Serious: Yes (Other)
  Sender: FDA-Public Use
  Company Number: JP-WYE-H11384209

PATIENT
  Age: 31 Year
  Sex: Female

DRUGS (5)
  1. EFFEXOR [Suspect]
     Indication: MAJOR DEPRESSION
  2. EFFEXOR [Interacting]
  3. CLOMIPRAMINE [Interacting]
     Indication: MAJOR DEPRESSION
  4. CLOMIPRAMINE [Interacting]
  5. CLOMIPRAMINE [Interacting]

REACTIONS (9)
  - ABDOMINAL PAIN UPPER [None]
  - DELUSION OF REFERENCE [None]
  - DEPRESSED MOOD [None]
  - DIZZINESS [None]
  - DRUG INTERACTION [None]
  - DRUG WITHDRAWAL SYNDROME [None]
  - FEAR OF DEATH [None]
  - NAUSEA [None]
  - PALPITATIONS [None]
